FAERS Safety Report 9914349 (Version 1)
Quarter: 2014Q1

REPORT INFORMATION
  Report Type: Spontaneous
  Country: US (occurrence: None)
  Receive Date: 20140219
  Receipt Date: 20140219
  Transmission Date: 20141002
  Serious: Yes (Other)
  Sender: FDA-Public Use
  Company Number: None

PATIENT
  Age: 65 Year
  Sex: Female

DRUGS (1)
  1. EXEMESTANE [Suspect]
     Indication: NEOPLASM MALIGNANT
     Dosage: 1 TABLET
     Route: 048

REACTIONS (1)
  - Product substitution issue [None]
